APPROVED DRUG PRODUCT: LEVOLEUCOVORIN CALCIUM
Active Ingredient: LEVOLEUCOVORIN CALCIUM
Strength: EQ 50MG BASE/VIAL
Dosage Form/Route: POWDER;INTRAVENOUS
Application: A206263 | Product #001
Applicant: HIKMA PHARMACEUTICALS USA INC
Approved: Jun 16, 2016 | RLD: No | RS: No | Type: DISCN